FAERS Safety Report 7222818-2 (Version None)
Quarter: 2011Q1

REPORT INFORMATION
  Report Type: 
  Country: None (occurrence: None)
  Receive Date: 20110112
  Receipt Date: 20101123
  Transmission Date: 20110831
  Serious: Yes (Hospitalization, Other)
  Sender: FDA-Public Use
  Company Number: US-BAYER-200916122NA

PATIENT
  Sex: Female

DRUGS (8)
  1. BETASERON [Suspect]
     Indication: MULTIPLE SCLEROSIS
     Route: 058
     Dates: start: 20080821, end: 20081113
  2. SKELAXIN [Concomitant]
     Indication: HYPOAESTHESIA
     Route: 065
  3. BETASERON [Suspect]
     Route: 058
     Dates: start: 20090323, end: 20090731
  4. BETASERON [Suspect]
     Dosage: BETAJECT
     Route: 058
     Dates: start: 20090807
  5. BETASERON [Suspect]
     Route: 058
  6. METHADONE HCL [Concomitant]
     Indication: PAIN
     Dosage: 3-4 TABLETS
     Route: 048
     Dates: end: 20091115
  7. BETASERON [Suspect]
     Dosage: BETAJECT
     Route: 058
  8. BETASERON [Suspect]
     Indication: PRIMARY PROGRESSIVE MULTIPLE SCLEROSIS
     Route: 058
     Dates: start: 20090204, end: 20090317

REACTIONS (17)
  - HYPOAESTHESIA [None]
  - MUSCLE SPASMS [None]
  - FALL [None]
  - MUSCULOSKELETAL STIFFNESS [None]
  - DYSKINESIA [None]
  - JOINT RANGE OF MOTION DECREASED [None]
  - ADVERSE EVENT [None]
  - LIMB DISCOMFORT [None]
  - DYSPNOEA [None]
  - PALPITATIONS [None]
  - OEDEMA PERIPHERAL [None]
  - ASTHMA [None]
  - CHOLELITHIASIS [None]
  - CONVULSION [None]
  - PAIN [None]
  - MYALGIA [None]
  - WEIGHT DECREASED [None]
